FAERS Safety Report 21743795 (Version 1)
Quarter: 2022Q4

REPORT INFORMATION
  Report Type: Spontaneous
  Country: FR (occurrence: FR)
  Receive Date: 20221217
  Receipt Date: 20221217
  Transmission Date: 20230113
  Serious: Yes (Other)
  Sender: FDA-Public Use
  Company Number: FR-JNJFOC-20221158308

PATIENT
  Age: 73 Year
  Sex: Female

DRUGS (3)
  1. MELPHALAN [Suspect]
     Active Substance: MELPHALAN
     Indication: Plasma cell myeloma
     Dosage: 9 MILLIGRAM/SQ. METER (DOSE 4 DOSE(S)/WEEK, 1 WEEK(S)/CYCLE)
     Route: 065
     Dates: end: 20200707
  2. PREDNISONE [Suspect]
     Active Substance: PREDNISONE
     Indication: Plasma cell myeloma
     Dosage: 60 MILLIGRAM/SQ. METER (DOSE 4 DOSE(S)/WEEK, 1 WEEK(S)/CYCLE)
     Route: 065
     Dates: end: 20200707
  3. VELCADE [Suspect]
     Active Substance: BORTEZOMIB
     Indication: Plasma cell myeloma
     Dosage: 1.3 MILLIGRAM/SQ. METER, EVERY WEEK (1 DOSE(S)/WEEK 3 WEEK(S)/CYCLE
     Route: 065
     Dates: end: 20200707

REACTIONS (2)
  - Cytopenia [Unknown]
  - Intentional product use issue [Unknown]

NARRATIVE: CASE EVENT DATE: 20200318
